FAERS Safety Report 5932950-9 (Version None)
Quarter: 2008Q4

REPORT INFORMATION
  Report Type: 
  Country: None (occurrence: None)
  Receive Date: 20081028
  Receipt Date: 20081010
  Transmission Date: 20090506
  Serious: Yes (Hospitalization)
  Sender: FDA-Public Use
  Company Number: JP-MERCK-0810USA01914

PATIENT
  Age: 80 Year
  Sex: Female

DRUGS (4)
  1. FOSAMAX [Suspect]
     Indication: OSTEOPOROSIS
     Route: 048
     Dates: start: 20060701, end: 20080501
  2. ADALAT [Concomitant]
     Indication: HYPERTENSION
     Route: 048
     Dates: start: 20060701, end: 20080501
  3. MOBIC [Concomitant]
     Route: 048
     Dates: start: 20060701, end: 20080501
  4. VITAMILO ALFA [Concomitant]
     Route: 048

REACTIONS (1)
  - OSTEONECROSIS [None]
